FAERS Safety Report 4446719-8 (Version None)
Quarter: 2004Q3

REPORT INFORMATION
  Report Type: 
  Country: None (occurrence: None)
  Receive Date: 20040910
  Receipt Date: 20040902
  Transmission Date: 20050211
  Serious: Yes (Death, Life-Threatening)
  Sender: FDA-Public Use
  Company Number: 2004CG01715

PATIENT
  Age: 90 Year
  Sex: Female
  Weight: 55 kg

DRUGS (12)
  1. MOPRAL [Suspect]
     Indication: DUODENITIS
     Dates: start: 20040622, end: 20040712
  2. MOPRAL [Suspect]
     Indication: GASTRITIS
     Dates: start: 20040622, end: 20040712
  3. MIRTAZAPINE [Suspect]
     Dates: start: 20040708, end: 20040710
  4. DOGMATIL [Suspect]
     Dosage: 50 MG BID PO
     Route: 048
     Dates: start: 20040616, end: 20040708
  5. PRIMPERAN INJ [Suspect]
     Dates: start: 20040622, end: 20040709
  6. QUITAXON [Suspect]
     Dates: start: 20040623, end: 20040709
  7. PLAVIX [Suspect]
     Dates: start: 20040616, end: 20040712
  8. CORVASAL [Suspect]
     Dates: end: 20040712
  9. DITROPAN/SCH/ [Suspect]
     Dates: end: 20040709
  10. SMECTA ^IPSEN^ [Suspect]
     Dates: start: 20040622, end: 20040704
  11. FLAGYL [Suspect]
     Dates: start: 20040628, end: 20040704
  12. FUMAFER [Suspect]
     Dates: start: 20040708, end: 20040710

REACTIONS (8)
  - ANXIETY [None]
  - COAGULOPATHY [None]
  - DEPRESSION [None]
  - GASTRITIS [None]
  - GASTRODUODENITIS [None]
  - HEPATITIS [None]
  - IRON DEFICIENCY ANAEMIA [None]
  - RENAL FAILURE ACUTE [None]
